FAERS Safety Report 5393848-0 (Version None)
Quarter: 2007Q3

REPORT INFORMATION
  Report Type: 
  Country: None (occurrence: None)
  Receive Date: 20070723
  Receipt Date: 20070720
  Transmission Date: 20080115
  Serious: Yes (Hospitalization, Disabling, Other)
  Sender: FDA-Public Use
  Company Number: A0662184A

PATIENT
  Age: 59 Year
  Sex: Female
  Weight: 163 kg

DRUGS (4)
  1. ARIXTRA [Suspect]
     Dosage: 2.5MG PER DAY
     Route: 058
     Dates: start: 20070626, end: 20070701
  2. CLINORIL [Suspect]
     Indication: DRUG USE FOR UNKNOWN INDICATION
     Dosage: 200MG TWICE PER DAY
     Route: 065
     Dates: end: 20070701
  3. ASPIRIN [Suspect]
     Indication: DRUG USE FOR UNKNOWN INDICATION
     Route: 048
  4. NO CONCURRENT MEDICATION [Concomitant]

REACTIONS (1)
  - PEPTIC ULCER HAEMORRHAGE [None]
